FAERS Safety Report 5261063-7 (Version None)
Quarter: 2007Q1

REPORT INFORMATION
  Report Type: 
  Country: None (occurrence: None)
  Receive Date: 20070306
  Receipt Date: 20070221
  Transmission Date: 20070707
  Serious: Yes (Hospitalization)
  Sender: FDA-Public Use
  Company Number: 2007RR-05991

PATIENT
  Age: 25 Year
  Sex: Male

DRUGS (1)
  1. IBUPROFEN [Suspect]
     Indication: HEADACHE

REACTIONS (1)
  - EOSINOPHILIC PNEUMONIA [None]
